FAERS Safety Report 22101956 (Version 1)
Quarter: 2023Q1

REPORT INFORMATION
  Report Type: Report from Study
  Country: US (occurrence: None)
  Receive Date: 20230316
  Receipt Date: 20230316
  Transmission Date: 20230417
  Serious: Yes (Death)
  Sender: FDA-Public Use
  Company Number: US-ROCHE-3308617

PATIENT

DRUGS (3)
  1. ATEZOLIZUMAB [Suspect]
     Active Substance: ATEZOLIZUMAB
     Indication: Renal cell carcinoma
     Dosage: DATE OF LAST DOSE WAS ON 17/JAN/2019
     Route: 041
     Dates: start: 20181025
  2. BEVACIZUMAB [Suspect]
     Active Substance: BEVACIZUMAB
     Indication: Renal cell carcinoma
     Dosage: DATE OF LAST DOSE WAS ON 17/JAN/2019
     Route: 042
     Dates: start: 20181025
  3. ENTINOSTAT [Suspect]
     Active Substance: ENTINOSTAT
     Indication: Renal cell carcinoma
     Dosage: DATE OF LAST DOSE WAS ON 17/JAN/2019
     Route: 048
     Dates: start: 20181025

REACTIONS (1)
  - Disease progression [Fatal]
